FAERS Safety Report 16089255 (Version 2)
Quarter: 2019Q3

REPORT INFORMATION
  Report Type: Spontaneous
  Country: US (occurrence: US)
  Receive Date: 20190319
  Receipt Date: 20190923
  Transmission Date: 20191004
  Serious: Yes (Other)
  Sender: FDA-Public Use
  Company Number: US-MYLANLABS-2019M1022364

PATIENT
  Sex: Female
  Weight: 72.57 kg

DRUGS (4)
  1. EXEMESTANE TABLETS [Suspect]
     Active Substance: EXEMESTANE
     Indication: HORMONE LEVEL ABNORMAL
     Dosage: 25 MILLIGRAM, QD
     Route: 048
     Dates: start: 201807, end: 20181219
  2. DILANTIN [Concomitant]
     Active Substance: PHENYTOIN
     Indication: SEIZURE
     Dosage: 3 DOSAGE FORM (100 MILLIGRAM CAPSULE), HS
     Route: 048
  3. DILANTIN [Concomitant]
     Active Substance: PHENYTOIN
     Dosage: 3 DOSAGE FORM (100 MILLIGRAM CAPSULE), HS
     Route: 048
  4. DILANTIN [Concomitant]
     Active Substance: PHENYTOIN
     Dosage: 4 DOSAGE FORM ((100 MILLIGRAM CAPSULE), , QD
     Route: 048

REACTIONS (2)
  - Hepatic enzyme decreased [Unknown]
  - Seizure [Recovered/Resolved]

NARRATIVE: CASE EVENT DATE: 2018
